FAERS Safety Report 4452213-0 (Version None)
Quarter: 2004Q3

REPORT INFORMATION
  Report Type: 
  Country: None (occurrence: None)
  Receive Date: 20040916
  Receipt Date: 20040916
  Transmission Date: 20050211
  Serious: Yes (Hospitalization)
  Sender: FDA-Public Use
  Company Number: None

PATIENT
  Sex: Female

DRUGS (10)
  1. SULFAMETHOXAZOLE + TRIMETHOPRIM [Suspect]
     Dates: start: 20040401, end: 20040405
  2. LOTREL [Concomitant]
  3. NASACORT [Concomitant]
  4. LASIX [Concomitant]
  5. TOPAMAX [Concomitant]
  6. GLIPIZIDE [Concomitant]
  7. ALLEGRA [Concomitant]
  8. GLUCOPHAGE [Concomitant]
  9. CRESTOR [Concomitant]
  10. AVANDIA [Concomitant]

REACTIONS (1)
  - PANCREATITIS [None]
